FAERS Safety Report 19176401 (Version 2)
Quarter: 2021Q2

REPORT INFORMATION
  Report Type: Spontaneous
  Country: FR (occurrence: FR)
  Receive Date: 20210424
  Receipt Date: 20210618
  Transmission Date: 20210717
  Serious: Yes (Other)
  Sender: FDA-Public Use
  Company Number: FR-LUPIN PHARMACEUTICALS INC.-2021-05521

PATIENT
  Age: 25 Year
  Sex: Female

DRUGS (3)
  1. TRAMADOL. [Suspect]
     Active Substance: TRAMADOL
     Indication: PROCEDURAL PAIN
     Dosage: UNK?
     Route: 065
     Dates: start: 2014
  2. TRAMADOL. [Suspect]
     Active Substance: TRAMADOL
     Dosage: UNK?TAKING 1,000 TO 1,500 MG
     Route: 065
     Dates: end: 2019
  3. CODEINE [Concomitant]
     Active Substance: CODEINE
     Indication: PROCEDURAL PAIN
     Dosage: UNK
     Route: 065

REACTIONS (7)
  - Drug dependence [Unknown]
  - Epilepsy [Recovered/Resolved]
  - Somnolence [Unknown]
  - Overdose [Unknown]
  - Withdrawal syndrome [Unknown]
  - Maternal exposure during pregnancy [Unknown]
  - Intentional product misuse [Unknown]
